FAERS Safety Report 8113445-3 (Version None)
Quarter: 2012Q1

REPORT INFORMATION
  Report Type: 
  Country: None (occurrence: None)
  Receive Date: 20120203
  Receipt Date: 20120120
  Transmission Date: 20120608
  Serious: Yes (Hospitalization)
  Sender: FDA-Public Use
  Company Number: FR-UCBSA-050383

PATIENT
  Age: 23 Year
  Sex: Female

DRUGS (14)
  1. XYZAL [Suspect]
     Route: 048
     Dates: start: 20100615, end: 20100625
  2. PROPOFOL [Concomitant]
  3. CEFAMANDOLE SODIUM [Suspect]
     Route: 042
  4. MORPHINE [Concomitant]
  5. DROPERIDOL [Concomitant]
  6. ULTIVA [Concomitant]
  7. PRIMPERAN TAB [Concomitant]
     Dates: end: 20100101
  8. NEXIUM [Suspect]
     Dates: end: 20100101
  9. ROCURONIUM BROMIDE [Concomitant]
  10. SPASFON [Concomitant]
  11. KETOPROFEN [Suspect]
     Dates: end: 20100101
  12. XYLOCAINE [Concomitant]
  13. TIBERAL [Suspect]
     Route: 042
     Dates: start: 20100622
  14. ACUPAN [Concomitant]

REACTIONS (3)
  - ERYTHEMA [None]
  - HEPATITIS CHOLESTATIC [None]
  - CYTOLYTIC HEPATITIS [None]
